FAERS Safety Report 6255089-4 (Version None)
Quarter: 2009Q3

REPORT INFORMATION
  Report Type: 
  Country: None (occurrence: None)
  Receive Date: 20090702
  Receipt Date: 20090624
  Transmission Date: 20100115
  Serious: Yes (Hospitalization)
  Sender: FDA-Public Use
  Company Number: US-JNJFOC-20090609400

PATIENT
  Sex: Female
  Weight: 33.38 kg

DRUGS (13)
  1. INFLIXIMAB [Suspect]
     Route: 042
  2. INFLIXIMAB [Suspect]
     Indication: INFLAMMATORY BOWEL DISEASE
     Route: 042
  3. FISH OIL [Concomitant]
  4. KENALOG [Concomitant]
  5. MULTI-VITAMINS [Concomitant]
  6. KETOCONAZOLE [Concomitant]
  7. LEVAQUIN [Concomitant]
  8. NYSTATIN [Concomitant]
  9. ZINC SULFATE [Concomitant]
  10. ACETAMINOPHEN [Concomitant]
  11. HUMIRA [Concomitant]
     Indication: INFLAMMATORY BOWEL DISEASE
  12. MESALAZINE (5-ASA) [Concomitant]
     Indication: INFLAMMATORY BOWEL DISEASE
  13. ANTIBIOTICS [Concomitant]

REACTIONS (1)
  - PYREXIA [None]
